FAERS Safety Report 26140091 (Version 2)
Quarter: 2025Q4

REPORT INFORMATION
  Report Type: Spontaneous
  Country: EU (occurrence: EU)
  Receive Date: 20251210
  Receipt Date: 20251218
  Transmission Date: 20260117
  Serious: Yes (Death, Other)
  Sender: HIKMA
  Company Number: None

PATIENT
  Age: 64 Year
  Sex: Male
  Weight: 118 kg

DRUGS (2)
  1. DAPTOMYCIN [Suspect]
     Active Substance: DAPTOMYCIN
     Dosage: UNK
     Route: 042
     Dates: start: 20250710, end: 20250717
  2. DAPTOMYCIN [Suspect]
     Active Substance: DAPTOMYCIN
     Indication: Sepsis
     Dosage: 1200 MILLIGRAM, QOD
     Route: 042
     Dates: start: 20250619, end: 20250626

REACTIONS (1)
  - Eosinophilic pneumonia acute [Fatal]

NARRATIVE: CASE EVENT DATE: 20250701
